FAERS Safety Report 9922389 (Version 1)
Quarter: 2014Q1

REPORT INFORMATION
  Report Type: Spontaneous
  Country: US (occurrence: None)
  Receive Date: 20140224
  Receipt Date: 20140224
  Transmission Date: 20141002
  Serious: Yes (Disabling)
  Sender: FDA-Public Use
  Company Number: None

PATIENT
  Age: 66 Year
  Sex: Female
  Weight: 89.81 kg

DRUGS (2)
  1. RITUXAN [Suspect]
  2. PROLIA [Suspect]

REACTIONS (4)
  - Lichen planus [None]
  - Anal pruritus [None]
  - Anorectal discomfort [None]
  - Vulval disorder [None]
